FAERS Safety Report 9703036 (Version 8)
Quarter: 2014Q1

REPORT INFORMATION
  Report Type: Report from Study
  Country: DE (occurrence: DE)
  Receive Date: 20131122
  Receipt Date: 20140313
  Transmission Date: 20141002
  Serious: Yes (Life-Threatening, Hospitalization, Disabling, Other)
  Sender: FDA-Public Use
  Company Number: DE-BEH-2013038577

PATIENT
  Sex: Male
  Weight: 12.6 kg

DRUGS (25)
  1. HAEMATE [Suspect]
     Indication: IMMUNE TOLERANCE INDUCTION
     Dosage: SINCE THE LAST DOSE OF BIOSTATE ON 02-SEP-2013 AT 19:05 TREATMENT WITH HAEMATE
     Route: 042
     Dates: start: 20130903, end: 20131018
  2. HAEMATE [Suspect]
  3. HAEMATE [Suspect]
  4. CLINDAMYCIN [Concomitant]
     Indication: DEVICE RELATED INFECTION
     Route: 042
     Dates: start: 20130614, end: 20130629
  5. ZYVOXID [Concomitant]
     Indication: DEVICE RELATED INFECTION
     Route: 042
     Dates: start: 20130614, end: 20130629
  6. BIOSTATE [Concomitant]
     Indication: HAEMOPHILIA A WITH ANTI FACTOR VIII
     Dates: start: 20130115
  7. BIOSTATE [Concomitant]
     Route: 042
     Dates: start: 20130902
  8. BIOSTATE [Concomitant]
     Dates: start: 20130702
  9. FEIBA [Concomitant]
     Route: 042
     Dates: start: 20131018, end: 20131018
  10. NOVOSEVEN [Concomitant]
     Route: 042
     Dates: start: 20131015, end: 20131016
  11. NOVOSEVEN [Concomitant]
     Route: 042
     Dates: start: 20131016, end: 20131017
  12. NOVOSEVEN [Concomitant]
     Route: 042
     Dates: start: 20131017, end: 20131017
  13. NOVOSEVEN [Concomitant]
     Route: 042
     Dates: start: 20131017, end: 20131018
  14. NOVOSEVEN [Concomitant]
     Route: 042
     Dates: start: 20131018, end: 20131018
  15. NOVOSEVEN [Concomitant]
     Route: 042
     Dates: start: 20131018, end: 20131029
  16. URBASON [Concomitant]
     Route: 042
     Dates: start: 20131018, end: 20131024
  17. URBASON [Concomitant]
     Route: 042
     Dates: start: 20131024, end: 20131025
  18. URBASON [Concomitant]
     Indication: PROPHYLAXIS
     Route: 042
     Dates: start: 20131025, end: 20131027
  19. ANTRA [Concomitant]
     Indication: DRUG THERAPY
     Route: 042
     Dates: start: 20131021, end: 20131029
  20. KEPPRA [Concomitant]
     Route: 042
     Dates: start: 20131021, end: 20131028
  21. KEPPRA [Concomitant]
     Indication: CONVULSION
     Dosage: STOP DATE: ONGOING
     Route: 048
     Dates: start: 20131028
  22. PCM [Concomitant]
     Indication: PAIN
     Route: 048
     Dates: start: 20131021, end: 20131023
  23. IBUPROFEN [Concomitant]
     Indication: PAIN
     Route: 048
     Dates: start: 20131023, end: 20131029
  24. SALBUTAMOL [Concomitant]
     Indication: EXTUBATION
     Route: 055
     Dates: start: 20131022, end: 20131022
  25. CEFUROXIM [Concomitant]
     Indication: ADVERSE EVENT
     Route: 042
     Dates: start: 20131019, end: 20131027

REACTIONS (4)
  - Ischaemic stroke [Recovered/Resolved with Sequelae]
  - Carotid artery stenosis [Not Recovered/Not Resolved]
  - Hydrocephalus [Not Recovered/Not Resolved]
  - Mouth haemorrhage [Recovered/Resolved]
